FAERS Safety Report 19289016 (Version 17)
Quarter: 2025Q3

REPORT INFORMATION
  Report Type: Spontaneous
  Country: JP (occurrence: JP)
  Receive Date: 20210521
  Receipt Date: 20250910
  Transmission Date: 20251020
  Serious: Yes (Hospitalization, Other)
  Sender: BIOGEN
  Company Number: JP-BIOGEN-2021BI01010656

PATIENT
  Age: 58 Year
  Sex: Female
  Weight: 53 kg

DRUGS (13)
  1. TYSABRI [Suspect]
     Active Substance: NATALIZUMAB
     Indication: Relapsing-remitting multiple sclerosis
     Route: 050
     Dates: start: 20111214
  2. TYSABRI [Suspect]
     Active Substance: NATALIZUMAB
     Route: 050
     Dates: start: 20141119, end: 20151111
  3. TYSABRI [Suspect]
     Active Substance: NATALIZUMAB
     Route: 050
     Dates: start: 201803
  4. TYSABRI [Suspect]
     Active Substance: NATALIZUMAB
     Route: 050
     Dates: end: 20191002
  5. TYSABRI [Suspect]
     Active Substance: NATALIZUMAB
     Route: 050
     Dates: start: 20191113, end: 20210427
  6. TYSABRI [Suspect]
     Active Substance: NATALIZUMAB
     Route: 050
  7. TYSABRI [Suspect]
     Active Substance: NATALIZUMAB
     Dosage: ON 25 DAYS FROM THE ONSET OF PML, 107TH ADMINISTRATION
     Route: 050
  8. TYSABRI [Suspect]
     Active Substance: NATALIZUMAB
     Dosage: ON 66 DAYS FROM THE ONSET OF PML, 108TH ADMINISTRATION (FINAL DOSE)
     Route: 050
  9. CLONAZEPAM [Concomitant]
     Active Substance: CLONAZEPAM
     Route: 050
  10. BACLOFEN [Concomitant]
     Active Substance: BACLOFEN
     Route: 050
  11. EPINASTINE [Concomitant]
     Active Substance: EPINASTINE HYDROCHLORIDE
     Route: 050
  12. SODIUM FERROUS CITRATE [Concomitant]
     Active Substance: SODIUM FERROUS CITRATE
     Route: 050
  13. OXYBUTYNIN CHLORIDE [Concomitant]
     Active Substance: OXYBUTYNIN CHLORIDE
     Route: 050

REACTIONS (4)
  - Progressive multifocal leukoencephalopathy [Recovered/Resolved with Sequelae]
  - Immune reconstitution inflammatory syndrome [Recovered/Resolved with Sequelae]
  - Prescribed underdose [Unknown]
  - Prescribed overdose [Unknown]

NARRATIVE: CASE EVENT DATE: 20210201
